FAERS Safety Report 4708447-0 (Version None)
Quarter: 2005Q3

REPORT INFORMATION
  Report Type: 
  Country: None (occurrence: None)
  Receive Date: 20050705
  Receipt Date: 20050622
  Transmission Date: 20060218
  Serious: Yes (Other)
  Sender: FDA-Public Use
  Company Number: 2005092508

PATIENT
  Age: 34 Year
  Sex: Female
  Weight: 99.3377 kg

DRUGS (2)
  1. DEPO-PROVERA [Suspect]
     Indication: UTERINE LEIOMYOMA
     Dosage: INTRAMUSCULAR
     Route: 030
     Dates: start: 20050405, end: 20050405
  2. AMARYL [Suspect]
     Indication: DIABETES MELLITUS
     Dosage: ORAL
     Route: 048
     Dates: start: 20050501

REACTIONS (17)
  - AMNESIA [None]
  - ANXIETY [None]
  - APHASIA [None]
  - ASTHENIA [None]
  - CHILLS [None]
  - CONVULSION [None]
  - DEPRESSION [None]
  - DIABETES MELLITUS [None]
  - FATIGUE [None]
  - FEAR [None]
  - FEELING ABNORMAL [None]
  - HYPERHIDROSIS [None]
  - ORAL INTAKE REDUCED [None]
  - PSYCHOTIC DISORDER [None]
  - PYREXIA [None]
  - TREATMENT NONCOMPLIANCE [None]
  - WEIGHT DECREASED [None]
